FAERS Safety Report 7356429-5 (Version None)
Quarter: 2011Q1

REPORT INFORMATION
  Report Type: 
  Country: None (occurrence: None)
  Receive Date: 20110316
  Receipt Date: 20110124
  Transmission Date: 20110831
  Serious: Yes (Life-Threatening, Hospitalization, Disabling)
  Sender: FDA-Public Use
  Company Number: FR-GENENTECH-313174

PATIENT
  Sex: Female

DRUGS (2)
  1. LUCENTIS [Suspect]
     Indication: MACULAR DEGENERATION
     Dosage: UNK
     Route: 031
     Dates: start: 20071001
  2. LUCENTIS [Suspect]
     Dosage: UNK
     Route: 031
     Dates: start: 20101022

REACTIONS (1)
  - HAEMORRHAGIC STROKE [None]
